FAERS Safety Report 4685624-9 (Version None)
Quarter: 2005Q2

REPORT INFORMATION
  Report Type: 
  Country: None (occurrence: None)
  Receive Date: 20050608
  Receipt Date: 20050519
  Transmission Date: 20051028
  Serious: Yes (Other)
  Sender: FDA-Public Use
  Company Number: 214773

PATIENT
  Age: 68 Year
  Sex: Female

DRUGS (14)
  1. HERCEPTIN [Suspect]
     Indication: BREAST CANCER METASTATIC
     Dosage: SEE IMAGE
     Route: 042
     Dates: start: 20020125, end: 20030701
  2. HERCEPTIN [Suspect]
     Indication: BREAST CANCER METASTATIC
     Dosage: SEE IMAGE
     Route: 042
     Dates: start: 20030711, end: 20040601
  3. HERCEPTIN [Suspect]
     Indication: BREAST CANCER METASTATIC
     Dosage: SEE IMAGE
     Route: 042
     Dates: start: 20040618, end: 20050119
  4. HERCEPTIN [Suspect]
     Indication: BREAST CANCER METASTATIC
     Dosage: SEE IMAGE
     Route: 042
     Dates: start: 20050324, end: 20050509
  5. FURTULON (DOXIFLURIDINE) [Suspect]
     Indication: BREAST CANCER METASTATIC
     Dosage: ORAL
     Route: 048
     Dates: start: 20020501, end: 20021129
  6. FURTULON (DOXIFLURIDINE) [Suspect]
     Indication: BREAST CANCER METASTATIC
     Dosage: ORAL
     Route: 048
     Dates: start: 20050404, end: 20050509
  7. AROMASIN [Suspect]
     Indication: BREAST CANCER METASTATIC
     Dosage: ORAL
     Route: 048
     Dates: start: 20050119, end: 20050509
  8. BONALON (ALENDRONATE SODIUM) [Suspect]
     Dates: start: 20050119, end: 20050509
  9. AREDIA [Concomitant]
  10. CYCLOPHOSPHAMIDE [Concomitant]
  11. TAXOTERE [Concomitant]
  12. ARIMIDEX [Concomitant]
  13. BISPHONAL (DISODIUM INCADRONATE0 [Concomitant]
  14. ALENDRONATE (ALENDRONATE SODIUM) [Concomitant]

REACTIONS (8)
  - DYSPNOEA [None]
  - INTERSTITIAL LUNG DISEASE [None]
  - LYMPHANGIOSIS CARCINOMATOSA [None]
  - MALAISE [None]
  - METASTASES TO CENTRAL NERVOUS SYSTEM [None]
  - OEDEMA [None]
  - PULMONARY FIBROSIS [None]
  - TUMOUR MARKER INCREASED [None]
